FAERS Safety Report 4354247-3 (Version None)
Quarter: 2004Q2

REPORT INFORMATION
  Report Type: 
  Country: None (occurrence: None)
  Receive Date: 20040506
  Receipt Date: 20040415
  Transmission Date: 20050107
  Serious: Yes (Death, Hospitalization)
  Sender: FDA-Public Use
  Company Number: US-BRISTOL-MYERS SQUIBB COMPANY-12577516

PATIENT
  Age: 48 Year
  Sex: Male

DRUGS (17)
  1. CYCLOPHOSPHAMIDE [Suspect]
     Indication: LYMPHOMA
     Dosage: DOSE=3 GRAMS/M^2
     Route: 042
  2. PACLITAXEL [Suspect]
     Indication: LYMPHOEDEMA
     Route: 042
     Dates: start: 20010201, end: 20011201
  3. ETOPOSIDE [Suspect]
     Indication: LYMPHOMA
     Route: 042
  4. IFOSFAMIDE [Suspect]
     Indication: LYMPHOMA
     Dates: start: 20020501, end: 20020101
  5. CARBOPLATIN [Suspect]
     Indication: LYMPHOMA
     Dates: start: 20020501, end: 20020101
  6. VINCRISTINE SULFATE [Suspect]
     Indication: LYMPHOMA
     Route: 042
  7. DOXORUBICIN HCL [Suspect]
     Indication: LYMPHOMA
     Route: 042
  8. PREDNISONE [Suspect]
     Indication: LYMPHOMA
     Route: 048
  9. VINORELBINE TARTRATE [Suspect]
  10. BUSULFAN [Suspect]
     Indication: LYMPHOMA
     Route: 048
  11. G-CSF [Suspect]
     Indication: LYMPHOMA
     Route: 058
     Dates: start: 20020101, end: 20020101
  12. ZIDOVUDINE [Concomitant]
     Indication: HIV INFECTION
     Dates: start: 19960101
  13. LAMIVUDINE [Concomitant]
     Indication: HIV INFECTION
     Dates: start: 19960101
  14. NELFINAVIR [Concomitant]
     Indication: HIV INFECTION
     Dates: start: 19960101
  15. RADIATION THERAPY [Concomitant]
     Dates: start: 19960101, end: 20000101
  16. RETINOIC ACID [Concomitant]
     Dates: start: 19960101, end: 20000101
  17. DOXORUBICIN HCL [Concomitant]
     Dates: start: 19960101, end: 20000101

REACTIONS (8)
  - ALOPECIA [None]
  - BONE MARROW DEPRESSION [None]
  - FEBRILE NEUTROPENIA [None]
  - HEADACHE [None]
  - MUCOSAL INFLAMMATION [None]
  - NAUSEA [None]
  - PRIMARY MEDIASTINAL LARGE B-CELL LYMPHOMA REFRACTORY [None]
  - THROMBOCYTOPENIA [None]
